FAERS Safety Report 8432269 (Version 4)
Quarter: 2013Q2

REPORT INFORMATION
  Report Type: Spontaneous
  Country: US (occurrence: US)
  Receive Date: 20120229
  Receipt Date: 20130522
  Transmission Date: 20140414
  Serious: Yes (Hospitalization, Other)
  Sender: FDA-Public Use
  Company Number: US-PFIZER INC-2012052267

PATIENT
  Age: 33 Year
  Sex: Female
  Weight: 98 kg

DRUGS (2)
  1. CHANTIX [Suspect]
     Dosage: STARTING PAK AND 1MG CONTINUING MONTH PAK
     Dates: start: 20090616
  2. CHANTIX [Suspect]
     Dosage: 1 MG, UNK
     Dates: start: 20090720

REACTIONS (2)
  - Intentional overdose [Unknown]
  - Suicide attempt [Unknown]
